FAERS Safety Report 7171339-4 (Version None)
Quarter: 2010Q4

REPORT INFORMATION
  Report Type: 
  Country: None (occurrence: None)
  Receive Date: 20101217
  Receipt Date: 20101206
  Transmission Date: 20110411
  Serious: Yes (Hospitalization)
  Sender: FDA-Public Use
  Company Number: US-ELI_LILLY_AND_COMPANY-US201008009012

PATIENT
  Sex: Female

DRUGS (8)
  1. FORTEO [Suspect]
     Indication: OSTEOPOROSIS
     Dosage: 20 UG, DAILY (1/D)
  2. LIPITOR [Concomitant]
  3. COUMADIN [Concomitant]
  4. METOPROLOL [Concomitant]
  5. AMLODIPINE [Concomitant]
  6. TRAVATAN [Concomitant]
  7. DORZOLAMIDE [Concomitant]
  8. VITAMINS [Concomitant]

REACTIONS (2)
  - INFLUENZA [None]
  - INJECTION SITE HAEMATOMA [None]
